FAERS Safety Report 26218126 (Version 1)
Quarter: 2025Q4

REPORT INFORMATION
  Report Type: Spontaneous
  Country: US (occurrence: US)
  Receive Date: 20251231
  Receipt Date: 20251231
  Transmission Date: 20260117
  Serious: Yes (Life-Threatening, Hospitalization, Other)
  Sender: RANBAXY
  Company Number: US-SUN PHARMACEUTICAL INDUSTRIES INC-2025R1-544253

PATIENT
  Age: 40 Year
  Sex: Male

DRUGS (2)
  1. METHADONE [Interacting]
     Active Substance: METHADONE HYDROCHLORIDE
     Indication: Drug withdrawal maintenance therapy
     Dosage: 190 MILLIGRAM, DAILY
     Route: 065
  2. CITALOPRAM [Interacting]
     Active Substance: CITALOPRAM
     Indication: Antidepressant therapy
     Dosage: UNK
     Route: 065

REACTIONS (7)
  - Toxicity to various agents [Unknown]
  - Ventricular tachycardia [Recovered/Resolved]
  - Serotonin syndrome [Unknown]
  - Brain injury [Unknown]
  - Torsade de pointes [Unknown]
  - Electrocardiogram QT prolonged [Recovering/Resolving]
  - Drug interaction [Unknown]
